FAERS Safety Report 10045440 (Version 2)
Quarter: 2014Q2

REPORT INFORMATION
  Report Type: Spontaneous
  Country: US (occurrence: US)
  Receive Date: 20140328
  Receipt Date: 20140418
  Transmission Date: 20141212
  Serious: Yes (Life-Threatening, Hospitalization)
  Sender: FDA-Public Use
  Company Number: US-TARO-2014P1002732

PATIENT
  Age: 79 Year
  Sex: Male
  Weight: 70 kg

DRUGS (5)
  1. IMIQUIMOD [Suspect]
     Indication: ACTINIC KERATOSIS
     Route: 061
     Dates: start: 20140227
  2. SIMVASTATIN [Concomitant]
     Route: 048
     Dates: start: 2009
  3. ASPIRIN [Concomitant]
     Route: 048
     Dates: start: 1991
  4. METOPROLOL [Concomitant]
     Route: 048
     Dates: start: 1991
  5. CARAC [Concomitant]
     Route: 061
     Dates: start: 2009, end: 20140120

REACTIONS (2)
  - Nephrolithiasis [Recovering/Resolving]
  - Bacteraemia [Recovering/Resolving]
